FAERS Safety Report 6574782-7 (Version None)
Quarter: 2010Q1

REPORT INFORMATION
  Report Type: 
  Country: None (occurrence: None)
  Receive Date: 20100209
  Receipt Date: 20100126
  Transmission Date: 20100710
  Serious: Yes (Hospitalization)
  Sender: FDA-Public Use
  Company Number: PHHY2010NL03617

PATIENT
  Sex: Male

DRUGS (17)
  1. ZOMETA [Suspect]
     Dosage: UNK
     Route: 042
     Dates: start: 20081002
  2. ZOMETA [Suspect]
     Dosage: UNK
     Route: 042
     Dates: start: 20081030
  3. ZOMETA [Suspect]
     Dosage: UNK
     Route: 042
     Dates: start: 20081124
  4. ZOMETA [Suspect]
     Dosage: UNK
     Route: 042
     Dates: start: 20081222
  5. ZOMETA [Suspect]
     Dosage: UNK
     Route: 042
     Dates: start: 20090120
  6. ZOMETA [Suspect]
     Dosage: UNK
     Route: 042
     Dates: start: 20090217
  7. ZOMETA [Suspect]
     Dosage: UNK
     Route: 042
     Dates: start: 20090316
  8. ZOMETA [Suspect]
     Dosage: UNK
     Route: 042
     Dates: start: 20090415
  9. ZOMETA [Suspect]
     Dosage: UNK
     Route: 042
     Dates: start: 20090514
  10. ZOMETA [Suspect]
     Dosage: UNK
     Route: 042
     Dates: start: 20090610
  11. ZOMETA [Suspect]
     Dosage: UNK
     Route: 042
     Dates: start: 20090708
  12. ZOMETA [Suspect]
     Dosage: UNK
     Route: 042
     Dates: start: 20090805
  13. ZOMETA [Suspect]
     Dosage: UNK
     Route: 042
     Dates: start: 20090902
  14. ZOMETA [Suspect]
     Dosage: UNK
     Route: 042
     Dates: start: 20090930
  15. ZOMETA [Suspect]
     Dosage: UNK
     Route: 042
     Dates: start: 20091028
  16. ZOMETA [Suspect]
     Dosage: UNK
     Route: 042
     Dates: start: 20091126
  17. ZOMETA [Suspect]
     Dosage: UNK
     Route: 042
     Dates: start: 20091222

REACTIONS (3)
  - ABDOMINAL ADHESIONS [None]
  - INTESTINAL OPERATION [None]
  - VOMITING [None]
